FAERS Safety Report 23268531 (Version 1)
Quarter: 2023Q4

REPORT INFORMATION
  Report Type: Spontaneous
  Country: US (occurrence: US)
  Receive Date: 20231206
  Receipt Date: 20231206
  Transmission Date: 20240109
  Serious: No
  Sender: FDA-Public Use
  Company Number: US-UPSHER-SMITH LABORATORIES, LLC-2022USL00983

PATIENT
  Sex: Female
  Weight: 113.38 kg

DRUGS (7)
  1. MIDODRINE HYDROCHLORIDE [Suspect]
     Active Substance: MIDODRINE HYDROCHLORIDE
     Indication: Hypotension
     Dosage: 15 MG, 3X/DAY
     Dates: start: 202207, end: 2023
  2. MIDODRINE HYDROCHLORIDE [Suspect]
     Active Substance: MIDODRINE HYDROCHLORIDE
     Dosage: TITRATING DOWN
     Dates: start: 2023
  3. REMODULIN [Suspect]
     Active Substance: TREPROSTINIL
     Indication: Pulmonary arterial hypertension
     Dosage: UNK, CONTINUING
     Route: 041
     Dates: start: 20200221
  4. REMODULIN [Suspect]
     Active Substance: TREPROSTINIL
     Dosage: 0.048 ?G/KG, CONTINUING
     Route: 041
  5. REMODULIN [Suspect]
     Active Substance: TREPROSTINIL
     Dosage: 0.049 ?G/KG, CONTINUING
     Route: 041
  6. REMODULIN [Suspect]
     Active Substance: TREPROSTINIL
     Dosage: 0.043 ?G/KG, CONTINUING
     Route: 041
  7. OPSUMIT [Suspect]
     Active Substance: MACITENTAN

REACTIONS (5)
  - Palpitations [Unknown]
  - Sluggishness [Unknown]
  - Fatigue [Unknown]
  - Pain in extremity [Unknown]
  - Muscle spasms [Unknown]

NARRATIVE: CASE EVENT DATE: 20220101
